FAERS Safety Report 8006551-5 (Version None)
Quarter: 2011Q4

REPORT INFORMATION
  Report Type: 
  Country: None (occurrence: None)
  Receive Date: 20111227
  Receipt Date: 20111219
  Transmission Date: 20120403
  Serious: Yes (Hospitalization, Disabling)
  Sender: FDA-Public Use
  Company Number: GB-BRISTOL-MYERS SQUIBB COMPANY-16300451

PATIENT
  Sex: Male

DRUGS (17)
  1. ABDEC [Concomitant]
     Dosage: TAKEN IN MORNING
  2. SCOPODERM [Concomitant]
     Dosage: ONE PATCH BEHIND EAR FOR 3 DAYS
     Route: 062
  3. LEVOTHYROXINE SODIUM [Concomitant]
     Dosage: ALSO 50MCG TABS
  4. DOMPERIDONE [Concomitant]
     Dosage: FORM: TABLET.
  5. ASPIRIN [Concomitant]
     Dosage: TAKE AT NIGHT FORM: DISPERSIBLE TABLET.
  6. CLARITHROMYCIN [Concomitant]
     Dosage: 1DF=250MG/5ML
  7. LACTULOSE [Concomitant]
     Dosage: 3.1 - 3.7G/5ML
  8. PHENYTOIN [Concomitant]
     Dosage: TAKEN AT NIGHT TABLET
  9. OMEPRAZOLE [Concomitant]
     Dosage: FORM: TABLET.
  10. PRAVASTATIN [Suspect]
     Indication: HYPERCHOLESTEROLAEMIA
     Dosage: THERAPY DURATION: 7 YEARS, STOPPED AND RESTARTED AND FINALLY STOPPED AFTER 11 MONTHS.
     Dates: end: 20101203
  11. TRIMETHOPRIM [Concomitant]
     Dosage: TAKEN AT NIGHT
  12. THIAMINE HCL [Concomitant]
     Dosage: FORM: TABLET.
  13. VITAMIN B SUBSTANCES [Concomitant]
  14. LEVETIRACETAM [Concomitant]
     Dosage: FORM: TABLET.
  15. GALANTAMINE HYDROBROMIDE [Concomitant]
     Dosage: FORM: CAPSULE.
  16. AMLODIPINE [Concomitant]
     Dosage: FORM: TABLET.
  17. IRBESARTAN [Concomitant]
     Dosage: FORM: TABLET.

REACTIONS (4)
  - DYSPHONIA [None]
  - UNRESPONSIVE TO STIMULI [None]
  - COMMUNICATION DISORDER [None]
  - DYSPHAGIA [None]
